FAERS Safety Report 24468206 (Version 1)
Quarter: 2024Q4

REPORT INFORMATION
  Report Type: Report from Study
  Country: BR (occurrence: BR)
  Receive Date: 20241018
  Receipt Date: 20241018
  Transmission Date: 20250115
  Serious: No
  Sender: SANDOZ
  Company Number: BR-SANDOZ-SDZ2024BR087423

PATIENT
  Sex: Female

DRUGS (1)
  1. OMNITROPE [Suspect]
     Active Substance: SOMATROPIN
     Indication: Product used for unknown indication
     Dosage: 2 MG, QD
     Route: 065
     Dates: start: 20241003

REACTIONS (2)
  - Device issue [Unknown]
  - Wrong technique in product usage process [Unknown]
